FAERS Safety Report 9214871 (Version 2)
Quarter: 2013Q2

REPORT INFORMATION
  Report Type: Spontaneous
  Country: CA (occurrence: CA)
  Receive Date: 20130405
  Receipt Date: 20130425
  Transmission Date: 20140414
  Serious: Yes (Other)
  Sender: FDA-Public Use
  Company Number: CA-GLAXOSMITHKLINE-A1017699A

PATIENT
  Age: 68 Year
  Sex: Female
  Weight: 68.4 kg

DRUGS (3)
  1. ADVAIR [Suspect]
     Indication: ASTHMA
     Dosage: 2PUFF TWICE PER DAY
     Route: 055
     Dates: start: 20120719, end: 20130322
  2. FLOVENT [Suspect]
     Indication: ASTHMA
  3. ALENDRONATE [Concomitant]

REACTIONS (28)
  - Cushingoid [Unknown]
  - Eye infection bacterial [Unknown]
  - Eye infection viral [Unknown]
  - Dysphonia [Unknown]
  - Chest pain [Unknown]
  - Flatulence [Unknown]
  - Feeling hot [Unknown]
  - Rash macular [Unknown]
  - Blood pressure increased [Unknown]
  - Paraesthesia [Unknown]
  - Local swelling [Unknown]
  - Rash [Unknown]
  - Pain in extremity [Unknown]
  - Neuropathy peripheral [Unknown]
  - Blood disorder [Unknown]
  - Allergic granulomatous angiitis [Not Recovered/Not Resolved]
  - Asthma [Unknown]
  - Productive cough [Unknown]
  - Limb discomfort [Unknown]
  - Pneumonia [Unknown]
  - Sinusitis [Unknown]
  - Abdominal pain [Unknown]
  - Hypoaesthesia [Unknown]
  - Swelling face [Unknown]
  - Eosinophilia [Unknown]
  - Peripheral sensory neuropathy [Unknown]
  - Oedema [Unknown]
  - Hyponatraemia [Unknown]
